FAERS Safety Report 7290580-3 (Version None)
Quarter: 2011Q1

REPORT INFORMATION
  Report Type: 
  Country: None (occurrence: None)
  Receive Date: 20110209
  Receipt Date: 20110209
  Transmission Date: 20110831
  Serious: Yes (Other)
  Sender: FDA-Public Use
  Company Number: None

PATIENT
  Sex: Male
  Weight: 20.8655 kg

DRUGS (1)
  1. CVS COUGH RELIEF 15 MG CVS PHARMACY [Suspect]
     Indication: COUGH
     Dosage: 1 TEASPOON ONCE PO
     Route: 048
     Dates: start: 20110208, end: 20110208

REACTIONS (4)
  - LIP SWELLING [None]
  - RASH GENERALISED [None]
  - SWELLING FACE [None]
  - EYE SWELLING [None]
